FAERS Safety Report 5142545-5 (Version None)
Quarter: 2006Q4

REPORT INFORMATION
  Report Type: 
  Country: None (occurrence: None)
  Receive Date: 20061027
  Receipt Date: 20060925
  Transmission Date: 20070319
  Serious: Yes (Hospitalization)
  Sender: FDA-Public Use
  Company Number: 2006123145

PATIENT
  Sex: Male

DRUGS (3)
  1. CELEBREX [Suspect]
     Dosage: BEXTRA (VALDECOXIB)
     Dates: start: 20000901
  2. BEXTRA [Suspect]
     Dates: start: 20000701
  3. VIOXX [Suspect]
     Dosage: ORAL
     Route: 048
     Dates: start: 19990501, end: 20000701

REACTIONS (2)
  - CEREBROVASCULAR ACCIDENT [None]
  - TRANSIENT ISCHAEMIC ATTACK [None]
